FAERS Safety Report 6995873-2 (Version None)
Quarter: 2010Q3

REPORT INFORMATION
  Report Type: 
  Country: None (occurrence: None)
  Receive Date: 20100918
  Receipt Date: 20081216
  Transmission Date: 20110219
  Serious: Yes (Other)
  Sender: FDA-Public Use
  Company Number: US-WYE-H06822008

PATIENT
  Sex: Female
  Weight: 113.5 kg

DRUGS (9)
  1. EFFEXOR XR [Suspect]
     Indication: DEPRESSION
     Dosage: UP TO 225 MG DAILY
     Route: 048
     Dates: start: 20000101, end: 20070101
  2. EFFEXOR XR [Suspect]
     Route: 048
     Dates: start: 20070101, end: 20081109
  3. METHOTREXATE [Concomitant]
     Dosage: UNKNOWN
  4. XANAX [Concomitant]
     Dosage: UNKNOWN DOSE PRN
  5. PREDNISONE [Concomitant]
     Dosage: UNKNOWN
  6. LOVASTATIN [Concomitant]
     Dosage: UNKNOWN DOSE, PRN
  7. VICODIN [Concomitant]
     Dosage: UNKNOWN
  8. PLAVIX [Concomitant]
     Dosage: UNKNOWN
  9. VALTREX [Concomitant]
     Dosage: UNKNOWN

REACTIONS (3)
  - EUPHORIC MOOD [None]
  - HEADACHE [None]
  - LABILE HYPERTENSION [None]
